FAERS Safety Report 4696209-2 (Version None)
Quarter: 2005Q2

REPORT INFORMATION
  Report Type: 
  Country: None (occurrence: None)
  Receive Date: 20050621
  Receipt Date: 20050610
  Transmission Date: 20051028
  Serious: Yes (Hospitalization)
  Sender: FDA-Public Use
  Company Number: 2005AP03259

PATIENT
  Weight: 8 kg

DRUGS (1)
  1. MEROPENEM [Suspect]
     Route: 042

REACTIONS (2)
  - CONVULSION [None]
  - DRUG LEVEL DECREASED [None]
